FAERS Safety Report 12884387 (Version 1)
Quarter: 2016Q4

REPORT INFORMATION
  Report Type: Spontaneous
  Country: US (occurrence: US)
  Receive Date: 20161026
  Receipt Date: 20161026
  Transmission Date: 20170207
  Serious: No
  Sender: FDA-Public Use
  Company Number: US-009507513-1610USA010374

PATIENT

DRUGS (1)
  1. NITRO-DUR [Suspect]
     Active Substance: NITROGLYCERIN
     Dosage: UNK
     Route: 062

REACTIONS (3)
  - Drug dose omission [Unknown]
  - No adverse event [Unknown]
  - Product quality issue [Unknown]
